FAERS Safety Report 23762695 (Version 2)
Quarter: 2024Q2

REPORT INFORMATION
  Report Type: Other
  Country: KR (occurrence: None)
  Receive Date: 20240419
  Receipt Date: 20240503
  Transmission Date: 20240716
  Serious: Yes (Other)
  Sender: FDA-Public Use
  Company Number: KR-ROCHE-3548666

PATIENT

DRUGS (3)
  1. ATEZOLIZUMAB [Suspect]
     Active Substance: ATEZOLIZUMAB
     Indication: Neoplasm malignant
     Route: 065
  2. NIVOLUMAB [Suspect]
     Active Substance: NIVOLUMAB
     Indication: Neoplasm malignant
     Route: 065
  3. PEMBROLIZUMAB [Suspect]
     Active Substance: PEMBROLIZUMAB
     Indication: Neoplasm malignant
     Route: 065

REACTIONS (15)
  - Sepsis [Unknown]
  - Cardiac arrest [Unknown]
  - Cerebral haemorrhage [Unknown]
  - Herpes zoster [Unknown]
  - Type 2 diabetes mellitus [Unknown]
  - Mineral metabolism disorder [Unknown]
  - Delirium [Unknown]
  - Meningitis [Unknown]
  - Epilepsy [Unknown]
  - Ill-defined disorder [Unknown]
  - Otitis media [Unknown]
  - Somnolence [Unknown]
  - Seizure [Unknown]
  - Decubitus ulcer [Unknown]
  - Osteoporotic fracture [Unknown]
